FAERS Safety Report 19732195 (Version 1)
Quarter: 2021Q3

REPORT INFORMATION
  Report Type: Spontaneous
  Country: US (occurrence: US)
  Receive Date: 20210819
  Receipt Date: 20210819
  Transmission Date: 20211014
  Serious: No
  Sender: FDA-Public Use
  Company Number: None

PATIENT
  Age: 24 Year
  Sex: Female

DRUGS (1)
  1. HUMIRA [Suspect]
     Active Substance: ADALIMUMAB
     Indication: HIDRADENITIS
     Route: 058
     Dates: start: 20210129

REACTIONS (4)
  - Hidradenitis [None]
  - Cyst [None]
  - Therapeutic product effect incomplete [None]
  - Pain [None]

NARRATIVE: CASE EVENT DATE: 20210812
